FAERS Safety Report 8234729-4 (Version None)
Quarter: 2012Q1

REPORT INFORMATION
  Report Type: 
  Country: None (occurrence: None)
  Receive Date: 20120326
  Receipt Date: 20120325
  Transmission Date: 20120608
  Serious: No
  Sender: FDA-Public Use
  Company Number: US-PFIZER INC-2012076537

PATIENT
  Sex: Female
  Weight: 113 kg

DRUGS (5)
  1. CHANTIX [Suspect]
     Dosage: 1 MG, 2X/DAY
     Route: 048
     Dates: start: 20120301, end: 20120301
  2. TRAZODONE [Concomitant]
     Indication: SLEEP DISORDER
     Dosage: 100 MG, UNK
  3. PREMARIN [Concomitant]
     Indication: BLOOD OESTROGEN DECREASED
     Dosage: 1.25 MG, UNK
  4. CHANTIX [Suspect]
     Indication: SMOKING CESSATION THERAPY
     Dosage: UNK
     Route: 048
     Dates: start: 20120301, end: 20120301
  5. EFFEXOR XR [Concomitant]
     Indication: DEPRESSION
     Dosage: 75 MG, UNK

REACTIONS (4)
  - HOSTILITY [None]
  - FEELING ABNORMAL [None]
  - ANGER [None]
  - CRYING [None]
